FAERS Safety Report 9588266 (Version 1)
Quarter: 2013Q4

REPORT INFORMATION
  Report Type: Spontaneous
  Country: US (occurrence: US)
  Receive Date: 20131003
  Receipt Date: 20131003
  Transmission Date: 20140711
  Serious: No
  Sender: FDA-Public Use
  Company Number: US-AMGEN-USASP2012063503

PATIENT
  Age: 59 Year
  Sex: Female

DRUGS (5)
  1. ENBREL [Suspect]
     Indication: RHEUMATOID ARTHRITIS
     Dosage: 50 MG, QWK
     Route: 058
  2. CELEBREX [Concomitant]
     Dosage: 100 MG, UNK
     Route: 048
  3. HYZAAR [Concomitant]
     Dosage: 50-12.5
     Route: 048
  4. AMLODIPINE [Concomitant]
     Dosage: 5 MG, UNK
  5. OMEGA 3                            /01334101/ [Concomitant]
     Dosage: 100 MG, UNK
     Route: 048

REACTIONS (1)
  - Influenza like illness [Unknown]
